FAERS Safety Report 7018135-6 (Version None)
Quarter: 2010Q3

REPORT INFORMATION
  Report Type: 
  Country: None (occurrence: None)
  Receive Date: 20100927
  Receipt Date: 20100927
  Transmission Date: 20110219
  Serious: Yes (Hospitalization)
  Sender: FDA-Public Use
  Company Number: None

PATIENT
  Age: 55 Year
  Sex: Female

DRUGS (1)
  1. ENOXAPARIN 180 MG [Suspect]
     Dosage: 180 MG DAILY IV
     Route: 042

REACTIONS (1)
  - VENOUS THROMBOSIS [None]
